FAERS Safety Report 25347384 (Version 2)
Quarter: 2025Q2

REPORT INFORMATION
  Report Type: Spontaneous
  Country: JP (occurrence: JP)
  Receive Date: 20250522
  Receipt Date: 20250530
  Transmission Date: 20250717
  Serious: Yes (Life-Threatening, Other)
  Sender: PFIZER
  Company Number: JP-PFIZER INC-PV202500060303

PATIENT
  Age: 76 Year
  Sex: Male

DRUGS (14)
  1. FOSPHENYTOIN SODIUM [Suspect]
     Active Substance: FOSPHENYTOIN SODIUM
     Indication: New onset refractory status epilepticus
  2. METHYLPREDNISOLONE SODIUM SUCCINATE [Suspect]
     Active Substance: METHYLPREDNISOLONE SODIUM SUCCINATE
     Indication: New onset refractory status epilepticus
     Dosage: 1000 MG, DAILY (DAYS 6 AND 47)
     Route: 042
  3. HUMAN IMMUNOGLOBULIN G [Suspect]
     Active Substance: HUMAN IMMUNOGLOBULIN G
     Indication: New onset refractory status epilepticus
     Dosage: 0.4 G/KG/DAY FOR 5 DAYS (DAY 11)
     Route: 042
  4. DIAZEPAM [Suspect]
     Active Substance: DIAZEPAM
     Indication: New onset refractory status epilepticus
  5. PHENOBARBITAL [Suspect]
     Active Substance: PHENOBARBITAL
     Indication: New onset refractory status epilepticus
  6. MIDAZOLAM [Suspect]
     Active Substance: MIDAZOLAM
     Indication: New onset refractory status epilepticus
  7. LEVETIRACETAM [Suspect]
     Active Substance: LEVETIRACETAM
     Indication: New onset refractory status epilepticus
  8. TOPIRAMATE [Suspect]
     Active Substance: TOPIRAMATE
     Indication: New onset refractory status epilepticus
  9. LACOSAMIDE [Suspect]
     Active Substance: LACOSAMIDE
     Indication: New onset refractory status epilepticus
  10. PERAMPANEL [Suspect]
     Active Substance: PERAMPANEL
     Indication: New onset refractory status epilepticus
  11. CLONAZEPAM [Suspect]
     Active Substance: CLONAZEPAM
     Indication: New onset refractory status epilepticus
  12. PROPOFOL [Suspect]
     Active Substance: PROPOFOL
     Indication: New onset refractory status epilepticus
  13. THIOPENTAL [Concomitant]
     Active Substance: THIOPENTAL
     Indication: New onset refractory status epilepticus
  14. THIAMYLAL [Concomitant]
     Active Substance: THIAMYLAL
     Indication: New onset refractory status epilepticus

REACTIONS (3)
  - Drug ineffective [Unknown]
  - Renal failure [Unknown]
  - Hyperbilirubinaemia [Unknown]
